FAERS Safety Report 4691409-X (Version None)
Quarter: 2005Q2

REPORT INFORMATION
  Report Type: 
  Country: None (occurrence: None)
  Receive Date: 20050615
  Receipt Date: 20050603
  Transmission Date: 20051028
  Serious: Yes (Life-Threatening, Hospitalization)
  Sender: FDA-Public Use
  Company Number: GXKR2005GB01106

PATIENT
  Age: 67 Year
  Sex: Female

DRUGS (4)
  1. ENALAPRIL [Suspect]
     Indication: ANGIOPATHY
  2. BISOPROLOL [Suspect]
     Indication: ANGIOPATHY
  3. BUMETANIDE [Suspect]
     Indication: ANGIOPATHY
  4. ISOSORBIDE MONONITRATE [Concomitant]

REACTIONS (11)
  - BLOOD PRESSURE SYSTOLIC DECREASED [None]
  - BRADYCARDIA [None]
  - DIALYSIS [None]
  - DIARRHOEA [None]
  - DRUG INTERACTION [None]
  - ELECTROCARDIOGRAM QRS COMPLEX PROLONGED [None]
  - GLASGOW COMA SCALE ABNORMAL [None]
  - HYPERKALAEMIA [None]
  - LOSS OF CONSCIOUSNESS [None]
  - RENAL FAILURE ACUTE [None]
  - SINOATRIAL BLOCK [None]
